FAERS Safety Report 7943380-2 (Version None)
Quarter: 2011Q4

REPORT INFORMATION
  Report Type: 
  Country: None (occurrence: None)
  Receive Date: 20111128
  Receipt Date: 20111122
  Transmission Date: 20120403
  Serious: No
  Sender: FDA-Public Use
  Company Number: US-BAYER-2011-089879

PATIENT
  Age: 23 Year
  Sex: Female
  Weight: 143.76 kg

DRUGS (1)
  1. MIRENA [Suspect]
     Indication: CONTRACEPTION
     Dosage: 20 MCG/24HR, CONT
     Route: 015
     Dates: start: 20100608, end: 20110925

REACTIONS (1)
  - PREGNANCY WITH CONTRACEPTIVE DEVICE [None]
